FAERS Safety Report 8415510-X (Version None)
Quarter: 2012Q2

REPORT INFORMATION
  Report Type: 
  Country: None (occurrence: None)
  Receive Date: 20120606
  Receipt Date: 20120523
  Transmission Date: 20120825
  Serious: Yes (Other)
  Sender: FDA-Public Use
  Company Number: US-BAYER-2012-052366

PATIENT

DRUGS (1)
  1. SODIUM BICARBONATE [Suspect]

REACTIONS (2)
  - EUPHORIC MOOD [None]
  - LOSS OF CONSCIOUSNESS [None]
